FAERS Safety Report 20957684 (Version 1)
Quarter: 2022Q2

REPORT INFORMATION
  Report Type: Spontaneous
  Country: AR (occurrence: AR)
  Receive Date: 20220614
  Receipt Date: 20220614
  Transmission Date: 20220721
  Serious: Yes (Other)
  Sender: FDA-Public Use
  Company Number: AR-PFIZER INC-PV202200001015

PATIENT
  Age: 77 Year
  Sex: Female

DRUGS (3)
  1. IBRANCE [Suspect]
     Active Substance: PALBOCICLIB
     Indication: Breast cancer metastatic
     Dosage: DAILY, SCHEME 3X1
     Dates: start: 20191105, end: 20220603
  2. FULVESTRANT [Concomitant]
     Active Substance: FULVESTRANT
  3. LETROZOLE [Concomitant]
     Active Substance: LETROZOLE

REACTIONS (1)
  - Liver injury [Not Recovered/Not Resolved]
